FAERS Safety Report 9559679 (Version 2)
Quarter: 2013Q4

REPORT INFORMATION
  Report Type: Spontaneous
  Country: US (occurrence: US)
  Receive Date: 20130927
  Receipt Date: 20131008
  Transmission Date: 20140711
  Serious: No
  Sender: FDA-Public Use
  Company Number: US-SHIRE-ALL1-2013-06513

PATIENT
  Age: 17 Year
  Sex: Male
  Weight: 57.6 kg

DRUGS (10)
  1. LIALDA [Suspect]
     Indication: COLITIS ULCERATIVE
     Dosage: UNK UNK, UNKNOWN(1-2 TABLETS/DAY FOR 2 WEEKS)
     Route: 048
     Dates: start: 20130619, end: 2013
  2. LIALDA [Suspect]
     Dosage: 4.8 G, (4 TABLETS)
     Route: 048
     Dates: start: 2013
  3. PREDNISONE [Concomitant]
     Indication: COLITIS ULCERATIVE
     Dosage: 30 MG, 2X/DAY:BID
     Route: 048
     Dates: start: 2013
  4. PREDNISONE [Concomitant]
     Indication: HEADACHE
     Dosage: 5 MG, UNKNOWN (FIVE 5 MG TABLETS)
     Route: 065
     Dates: start: 20130624, end: 20130628
  5. PREDNISONE [Concomitant]
     Dosage: 5 MG, UNKNOWN (THREE 5 MG TABLETS)
     Route: 065
     Dates: start: 20130629, end: 20130703
  6. PREDNISONE [Concomitant]
     Dosage: 5 MG, UNKNOWN (TWO 5 MG TABLETS)
     Route: 065
     Dates: start: 20130704, end: 20130708
  7. PREDNISONE [Concomitant]
     Dosage: 5 MG, 1X/DAY:QD
     Route: 065
     Dates: start: 20130708, end: 20130709
  8. PREDNISONE [Concomitant]
     Dosage: 40 MG, 1X/DAY:QD(FOR 10 DAYS)
     Route: 065
     Dates: start: 201307
  9. PREDNISONE [Concomitant]
     Dosage: 30 MG, 2X/DAY:BID(FOR 2 WEEKS)
     Route: 065
     Dates: start: 20130906
  10. OMEPRAZOLE [Concomitant]
     Indication: GASTROOESOPHAGEAL REFLUX DISEASE
     Dosage: 40 MG, 1X/DAY:QD
     Route: 048
     Dates: start: 2013

REACTIONS (15)
  - Abnormal loss of weight [Not Recovered/Not Resolved]
  - Decreased appetite [Not Recovered/Not Resolved]
  - Dysstasia [Not Recovered/Not Resolved]
  - White blood cell count increased [Not Recovered/Not Resolved]
  - Pain [Not Recovered/Not Resolved]
  - Headache [Recovered/Resolved]
  - Abdominal pain [Not Recovered/Not Resolved]
  - Pruritus [Not Recovered/Not Resolved]
  - Back pain [Not Recovered/Not Resolved]
  - Arthralgia [Not Recovered/Not Resolved]
  - Colitis ulcerative [Not Recovered/Not Resolved]
  - Condition aggravated [Not Recovered/Not Resolved]
  - Heart rate increased [Not Recovered/Not Resolved]
  - Off label use [Not Recovered/Not Resolved]
  - Drug ineffective [Unknown]
